FAERS Safety Report 6390779-4 (Version None)
Quarter: 2009Q4

REPORT INFORMATION
  Report Type: 
  Country: None (occurrence: None)
  Receive Date: 20091006
  Receipt Date: 20090929
  Transmission Date: 20100525
  Serious: Yes (Other)
  Sender: FDA-Public Use
  Company Number: US-BAYER-200914916BCC

PATIENT
  Sex: Male

DRUGS (2)
  1. MILK OF MAGNESIA TAB [Suspect]
     Indication: DRUG USE FOR UNKNOWN INDICATION
     Route: 048
     Dates: start: 20090914
  2. MIRALAX [Suspect]
     Indication: CONSTIPATION
     Dosage: TOTAL DAILY DOSE: 17 G  UNIT DOSE: 17 G
     Route: 048
     Dates: start: 20090914

REACTIONS (1)
  - LOSS OF CONSCIOUSNESS [None]
